FAERS Safety Report 7207644-2 (Version None)
Quarter: 2011Q1

REPORT INFORMATION
  Report Type: 
  Country: None (occurrence: None)
  Receive Date: 20110103
  Receipt Date: 20101227
  Transmission Date: 20110831
  Serious: Yes (Hospitalization)
  Sender: FDA-Public Use
  Company Number: JP-ABBOTT-10P-087-0684103-00

PATIENT
  Sex: Female
  Weight: 41 kg

DRUGS (13)
  1. HUMIRA [Suspect]
     Indication: RHEUMATOID ARTHRITIS
     Route: 058
     Dates: start: 20100511, end: 20100719
  2. PREDNISOLONE [Suspect]
     Dosage: 20MG DAILY
     Dates: start: 20100720, end: 20100802
  3. LOXOPROFEN SODIUM HYDRATE [Concomitant]
     Indication: RHEUMATOID ARTHRITIS
     Route: 048
     Dates: end: 20100723
  4. MOSAPRIDE CITRATE HYDRATE [Concomitant]
     Indication: REFLUX OESOPHAGITIS
     Route: 048
     Dates: end: 20100723
  5. LANSOPRAZOLE [Concomitant]
     Indication: REFLUX OESOPHAGITIS
     Route: 048
  6. FOLIC ACID [Concomitant]
     Indication: PROPHYLAXIS
     Route: 048
     Dates: end: 20100723
  7. LIMAPROST ALFADEX [Concomitant]
     Indication: SCLERODERMA
     Route: 048
     Dates: end: 20100723
  8. METHOTREXATE [Concomitant]
     Indication: RHEUMATOID ARTHRITIS
     Route: 048
     Dates: end: 20100723
  9. FOLIC ACID [Concomitant]
     Indication: ADVERSE DRUG REACTION
  10. PREDNISOLONE [Suspect]
     Indication: RHEUMATOID ARTHRITIS
     Dosage: 10 MG DAILY
     Route: 048
     Dates: start: 20100507, end: 20100705
  11. REBAMIPIDE [Concomitant]
     Indication: GASTRITIS PROPHYLAXIS
     Route: 048
     Dates: end: 20100723
  12. TOCOPHEROL CONCENTRATE CAP [Concomitant]
     Indication: SCLERODERMA
     Route: 048
     Dates: end: 20100723
  13. PREDNISOLONE [Suspect]
     Indication: SCLERODERMA
     Dosage: 12.5 MG DAILY
     Dates: start: 20100706, end: 20100719

REACTIONS (3)
  - SCLERODERMA [None]
  - BLOOD CREATININE INCREASED [None]
  - MYOSITIS [None]
